FAERS Safety Report 26089730 (Version 1)
Quarter: 2025Q4

REPORT INFORMATION
  Report Type: Spontaneous
  Country: CA (occurrence: CA)
  Receive Date: 20251125
  Receipt Date: 20251125
  Transmission Date: 20260118
  Serious: Yes (Other)
  Sender: JOHNSON AND JOHNSON
  Company Number: CA-JNJFOC-20251166952

PATIENT
  Age: 42 Year
  Sex: Male

DRUGS (3)
  1. INFLIXIMAB [Suspect]
     Active Substance: INFLIXIMAB
     Indication: Crohn^s disease
     Route: 041
  2. INFLIXIMAB [Suspect]
     Active Substance: INFLIXIMAB
     Indication: Crohn^s disease
     Route: 042
  3. INFLIXIMAB [Suspect]
     Active Substance: INFLIXIMAB
     Indication: Crohn^s disease
     Route: 058

REACTIONS (6)
  - Arthralgia [Unknown]
  - Pyoderma [Unknown]
  - Skin reaction [Unknown]
  - Overdose [Unknown]
  - Intentional product use issue [Unknown]
  - Off label use [Unknown]
